FAERS Safety Report 6596947-0 (Version None)
Quarter: 2010Q1

REPORT INFORMATION
  Report Type: 
  Country: None (occurrence: None)
  Receive Date: 20100222
  Receipt Date: 20100222
  Transmission Date: 20100710
  Serious: Yes (Other)
  Sender: FDA-Public Use
  Company Number: None

PATIENT
  Age: 55 Year
  Sex: Female
  Weight: 60.3284 kg

DRUGS (1)
  1. DULCOLAX [Suspect]
     Indication: CONSTIPATION
     Dosage: 2 TIMES 5 MG ONCE PO 1
     Route: 048
     Dates: start: 20100210, end: 20100210

REACTIONS (6)
  - DIARRHOEA HAEMORRHAGIC [None]
  - FATIGUE [None]
  - HYPERHIDROSIS [None]
  - MUSCLE SPASMS [None]
  - PAIN [None]
  - SYNCOPE [None]
